FAERS Safety Report 7109961-3 (Version None)
Quarter: 2010Q4

REPORT INFORMATION
  Report Type: 
  Country: None (occurrence: None)
  Receive Date: 20101118
  Receipt Date: 20101104
  Transmission Date: 20110411
  Serious: Yes (Death, Hospitalization, Other)
  Sender: FDA-Public Use
  Company Number: US-GENZYME-CLOF-1000323

PATIENT
  Sex: Male
  Weight: 40.95 kg

DRUGS (10)
  1. CLOLAR [Suspect]
     Indication: ACUTE LYMPHOCYTIC LEUKAEMIA
     Dosage: 27 MG, QDX3
     Route: 042
     Dates: start: 20081015, end: 20081017
  2. CLOLAR [Suspect]
     Dosage: 27 MG, QDX3
     Route: 042
     Dates: start: 20081022, end: 20081024
  3. CLOLAR [Suspect]
     Dosage: 28 MG, QDX3
     Route: 042
     Dates: start: 20081112, end: 20081114
  4. CLOLAR [Suspect]
     Dosage: 28 MG, QDX3
     Route: 042
     Dates: start: 20081119, end: 20081121
  5. CYCLOPHOSPHAMIDE [Suspect]
     Indication: ACUTE LYMPHOCYTIC LEUKAEMIA
     Dosage: 270 MG, QD
     Route: 042
     Dates: start: 20081014, end: 20081015
  6. CYCLOPHOSPHAMIDE [Suspect]
     Dosage: 540 MG, QD
     Route: 042
     Dates: start: 20081016, end: 20081017
  7. CYCLOPHOSPHAMIDE [Suspect]
     Dosage: 540 MG, QDX3
     Route: 042
     Dates: start: 20081022, end: 20081024
  8. CYCLOPHOSPHAMIDE [Suspect]
     Dosage: 550 MG, QDX3
     Route: 042
     Dates: start: 20081112, end: 20081114
  9. CYCLOPHOSPHAMIDE [Suspect]
     Dosage: 550 MG, QDX3
     Route: 042
     Dates: start: 20081119, end: 20081121
  10. ALLOPURINOL [Concomitant]
     Indication: PROPHYLAXIS
     Dosage: 200 MG, BID
     Route: 048
     Dates: start: 20081002, end: 20081021

REACTIONS (9)
  - DISEASE PROGRESSION [None]
  - FEBRILE NEUTROPENIA [None]
  - HYPOKALAEMIA [None]
  - LEUKOPENIA [None]
  - LIPASE INCREASED [None]
  - NEUTROPENIA [None]
  - PYREXIA [None]
  - SEPSIS [None]
  - THROMBOCYTOPENIA [None]
